FAERS Safety Report 17192948 (Version 1)
Quarter: 2019Q4

REPORT INFORMATION
  Report Type: Spontaneous
  Country: US (occurrence: US)
  Receive Date: 20191223
  Receipt Date: 20191223
  Transmission Date: 20200122
  Serious: No
  Sender: FDA-Public Use
  Company Number: US-SA-2019SA346734

PATIENT
  Age: 38 Year
  Sex: Female

DRUGS (6)
  1. ZANTAC [Concomitant]
     Active Substance: RANITIDINE HYDROCHLORIDE
  2. FAMOTIDINE. [Concomitant]
     Active Substance: FAMOTIDINE
  3. ZYRTEC [Concomitant]
     Active Substance: CETIRIZINE HYDROCHLORIDE
  4. OMPRAZOLE [Concomitant]
     Active Substance: OMEPRAZOLE
  5. DUPIXENT [Suspect]
     Active Substance: DUPILUMAB
     Indication: SINUSITIS
  6. DUPIXENT [Suspect]
     Active Substance: DUPILUMAB
     Indication: NASAL POLYPS
     Dosage: 300 MG, QOW
     Route: 058
     Dates: start: 20191115

REACTIONS (2)
  - Condition aggravated [Recovered/Resolved]
  - Tonsillolith [Recovered/Resolved]

NARRATIVE: CASE EVENT DATE: 20191116
